FAERS Safety Report 4932835-0 (Version None)
Quarter: 2006Q1

REPORT INFORMATION
  Report Type: 
  Country: None (occurrence: None)
  Receive Date: 20060306
  Receipt Date: 20060208
  Transmission Date: 20060701
  Serious: Yes (Other)
  Sender: FDA-Public Use
  Company Number: PHBS2006JP02297

PATIENT
  Age: 6 Year

DRUGS (5)
  1. ZADITEN [Suspect]
  2. ANTIBIOTICS [Concomitant]
  3. THEOPHYLLINE [Suspect]
     Indication: ASTHMA
     Dosage: 14 MG/KG/DAY
  4. CLARITHROMYCIN [Suspect]
  5. CHINESE MEDICINES [Concomitant]

REACTIONS (2)
  - CONVULSION [None]
  - PYREXIA [None]
